FAERS Safety Report 13893611 (Version 2)
Quarter: 2017Q3

REPORT INFORMATION
  Report Type: Spontaneous
  Country: DE (occurrence: DE)
  Receive Date: 20170822
  Receipt Date: 20170907
  Transmission Date: 20171127
  Serious: No
  Sender: FDA-Public Use
  Company Number: DE-BAUSCH-BL-2017-024685

PATIENT
  Age: 50 Year
  Sex: Male

DRUGS (4)
  1. GENT-OPHTAL AUGENSALBE [Suspect]
     Active Substance: GENTAMICIN SULFATE
     Dosage: MONDAY
     Route: 065
     Dates: start: 20170807
  2. GENT-OPHTAL AUGENSALBE [Suspect]
     Active Substance: GENTAMICIN SULFATE
     Indication: EYE PAIN
     Dosage: ON EYELIDS
     Route: 065
     Dates: start: 20170804
  3. GENT-OPHTAL AUGENSALBE [Suspect]
     Active Substance: GENTAMICIN SULFATE
     Dosage: AT NIGHT INTO THE CONJUCTIVAL SAC
     Route: 065
     Dates: start: 20170804
  4. GENT-OPHTAL AUGENSALBE [Suspect]
     Active Substance: GENTAMICIN SULFATE
     Dosage: SECOND TUBE
     Route: 065
     Dates: start: 201708

REACTIONS (6)
  - Drug effect incomplete [Recovered/Resolved]
  - Eye irritation [Not Recovered/Not Resolved]
  - Dry eye [Not Recovered/Not Resolved]
  - Drug administered at inappropriate site [Unknown]
  - Drug prescribing error [Unknown]
  - Eye pain [Recovering/Resolving]

NARRATIVE: CASE EVENT DATE: 201708
